FAERS Safety Report 23768620 (Version 2)
Quarter: 2024Q2

REPORT INFORMATION
  Report Type: Spontaneous
  Country: JP (occurrence: JP)
  Receive Date: 20240422
  Receipt Date: 20240503
  Transmission Date: 20240717
  Serious: No
  Sender: FDA-Public Use
  Company Number: JP-PFIZER INC-202400075261

PATIENT

DRUGS (1)
  1. NGENLA [Suspect]
     Active Substance: SOMATROGON-GHLA

REACTIONS (2)
  - Injection site pain [Unknown]
  - Off label use [Unknown]
